FAERS Safety Report 6361417-1 (Version None)
Quarter: 2009Q3

REPORT INFORMATION
  Report Type: 
  Country: None (occurrence: None)
  Receive Date: 20090918
  Receipt Date: 20090908
  Transmission Date: 20100115
  Serious: Yes (Hospitalization, Disabling)
  Sender: FDA-Public Use
  Company Number: FR-PFIZER INC-2009245144

PATIENT
  Age: 68 Year

DRUGS (7)
  1. BLINDED *NO SUBJECT DRUG [Suspect]
     Indication: PROSTATE CANCER
     Dosage: 37.5 MG, 1X/DAY
     Route: 048
     Dates: start: 20090529, end: 20090715
  2. BLINDED *PLACEBO [Suspect]
     Indication: PROSTATE CANCER
     Dosage: 37.5 MG, 1X/DAY
     Route: 048
     Dates: start: 20090529, end: 20090715
  3. BLINDED SUNITINIB MALATE [Suspect]
     Indication: PROSTATE CANCER
     Dosage: 37.5 MG, 1X/DAY
     Route: 048
     Dates: start: 20090529, end: 20090715
  4. PREDNISONE [Suspect]
     Indication: PROSTATE CANCER
     Dosage: 10 MG, 2X/DAY
     Route: 048
     Dates: start: 20090529, end: 20090715
  5. ZOLPIDEM [Concomitant]
     Indication: INSOMNIA
  6. FLUOXETINE [Concomitant]
     Indication: ANXIETY
     Dosage: UNK
     Dates: start: 20070101
  7. TRIPTORELIN [Concomitant]
     Indication: PROSTATE CANCER
     Dosage: UNK

REACTIONS (13)
  - ALANINE AMINOTRANSFERASE INCREASED [None]
  - ASPARTATE AMINOTRANSFERASE INCREASED [None]
  - BLOOD ALKALINE PHOSPHATASE INCREASED [None]
  - BLOOD GLUCOSE INCREASED [None]
  - BLOOD LACTATE DEHYDROGENASE INCREASED [None]
  - DECREASED APPETITE [None]
  - DIZZINESS [None]
  - GAMMA-GLUTAMYLTRANSFERASE INCREASED [None]
  - GENERAL PHYSICAL HEALTH DETERIORATION [None]
  - HAEMATOCRIT DECREASED [None]
  - HAEMOGLOBIN DECREASED [None]
  - JAUNDICE [None]
  - LIVER FUNCTION TEST ABNORMAL [None]
